FAERS Safety Report 20946160 (Version 3)
Quarter: 2025Q3

REPORT INFORMATION
  Report Type: Spontaneous
  Country: US (occurrence: US)
  Receive Date: 20220610
  Receipt Date: 20250803
  Transmission Date: 20251020
  Serious: Yes (Hospitalization)
  Sender: ALEXION PHARMACEUTICALS
  Company Number: 2022A208965

PATIENT
  Age: 36 Year
  Sex: Female
  Weight: 47.627 kg

DRUGS (1)
  1. SYMBICORT [Suspect]
     Active Substance: BUDESONIDE\FORMOTEROL FUMARATE DIHYDRATE
     Indication: Asthma
     Dosage: 2 PUFFS TWICE A DAY AS NEEDED

REACTIONS (7)
  - Throat irritation [Not Recovered/Not Resolved]
  - Cough [Unknown]
  - Oropharyngeal pain [Unknown]
  - Dysphagia [Unknown]
  - Sensation of foreign body [Unknown]
  - Crying [Unknown]
  - Expired device used [Unknown]

NARRATIVE: CASE EVENT DATE: 20220531
